FAERS Safety Report 8885942 (Version 2)
Quarter: 2012Q4

REPORT INFORMATION
  Report Type: 
  Country: US (occurrence: US)
  Receive Date: 20121105
  Receipt Date: 20121129
  Transmission Date: 20130627
  Serious: No
  Sender: FDA-Public Use
  Company Number: US-PFIZER INC-2012272248

PATIENT
  Age: 57 Year
  Sex: Female

DRUGS (4)
  1. SKELAXIN [Suspect]
     Dosage: UNK
  2. CODEINE [Suspect]
     Dosage: UNK
  3. AVELOX [Suspect]
     Dosage: UNK
  4. MOXIFLOXACIN [Suspect]
     Indication: PNEUMONIA
     Dosage: UNK
     Dates: start: 201101

REACTIONS (1)
  - Drug hypersensitivity [Unknown]
